FAERS Safety Report 7909960-5 (Version None)
Quarter: 2011Q4

REPORT INFORMATION
  Report Type: 
  Country: None (occurrence: None)
  Receive Date: 20111111
  Receipt Date: 20111107
  Transmission Date: 20120403
  Serious: Yes (Hospitalization)
  Sender: FDA-Public Use
  Company Number: US-ABBOTT-11P-163-0851030-00

PATIENT
  Sex: Female

DRUGS (2)
  1. HUMIRA [Suspect]
     Indication: RHEUMATOID ARTHRITIS
     Dates: start: 20030101
  2. UNKNOWN ANESTHETIC [Suspect]
     Indication: COLOSTOMY CLOSURE
     Dates: start: 20110311, end: 20110311

REACTIONS (13)
  - WEIGHT DECREASED [None]
  - URINARY TRACT INFECTION [None]
  - VOLVULUS [None]
  - APHAGIA [None]
  - FLUID INTAKE REDUCED [None]
  - UROSEPSIS [None]
  - DYSPNOEA [None]
  - ABASIA [None]
  - IRRITABLE BOWEL SYNDROME [None]
  - ABDOMINAL PAIN [None]
  - PNEUMONIA [None]
  - POST PROCEDURAL COMPLICATION [None]
  - ASPIRATION [None]
